FAERS Safety Report 14706210 (Version 1)
Quarter: 2018Q2

REPORT INFORMATION
  Report Type: Spontaneous
  Country: BR (occurrence: BR)
  Receive Date: 20180402
  Receipt Date: 20180402
  Transmission Date: 20180711
  Serious: Yes (Other)
  Sender: FDA-Public Use
  Company Number: BR-PFIZER INC-2018129875

PATIENT
  Age: 67 Year
  Sex: Female

DRUGS (1)
  1. XALATAN [Suspect]
     Active Substance: LATANOPROST
     Indication: GLAUCOMA
     Dosage: UNK
     Dates: start: 2009

REACTIONS (2)
  - Cataract [Unknown]
  - Breast cancer [Not Recovered/Not Resolved]

NARRATIVE: CASE EVENT DATE: 2009
